FAERS Safety Report 12106159 (Version 1)
Quarter: 2016Q1

REPORT INFORMATION
  Report Type: Spontaneous
  Country: FR (occurrence: FR)
  Receive Date: 20160223
  Receipt Date: 20160223
  Transmission Date: 20160526
  Serious: Yes (Life-Threatening, Hospitalization, Other)
  Sender: FDA-Public Use
  Company Number: FR-ELI_LILLY_AND_COMPANY-FR201602006878

PATIENT
  Age: 68 Year
  Sex: Male

DRUGS (1)
  1. ZYPADHERA [Suspect]
     Active Substance: OLANZAPINE PAMOATE
     Indication: PRODUCT USED FOR UNKNOWN INDICATION
     Dosage: 405 MG, OTHER: EVERY THREE WEEKS
     Route: 065
     Dates: start: 201402, end: 20160204

REACTIONS (5)
  - Antipsychotic drug level above therapeutic [Unknown]
  - Coma [Unknown]
  - Prescribed overdose [Recovered/Resolved]
  - Hyperthermia [Unknown]
  - Loss of consciousness [Unknown]

NARRATIVE: CASE EVENT DATE: 201402
